FAERS Safety Report 7740102-5 (Version None)
Quarter: 2011Q3

REPORT INFORMATION
  Report Type: 
  Country: None (occurrence: None)
  Receive Date: 20110909
  Receipt Date: 20110830
  Transmission Date: 20111222
  Serious: Yes (Other)
  Sender: FDA-Public Use
  Company Number: BR-PFIZER INC-2011202002

PATIENT
  Age: 31 Year
  Sex: Male
  Weight: 70 kg

DRUGS (2)
  1. CAVERJECT [Suspect]
     Indication: ERECTILE DYSFUNCTION
     Dosage: 10 UG, MONTHLY
     Route: 017
     Dates: start: 20100101
  2. CAVERJECT [Suspect]
     Dosage: 20 UG, SINGLE
     Route: 017
     Dates: start: 20110828, end: 20110828

REACTIONS (3)
  - INCORRECT DOSE ADMINISTERED [None]
  - ERECTION INCREASED [None]
  - PENILE SWELLING [None]
